FAERS Safety Report 18313302 (Version 2)
Quarter: 2020Q4

REPORT INFORMATION
  Report Type: Spontaneous
  Country: IT (occurrence: IT)
  Receive Date: 20200925
  Receipt Date: 20201007
  Transmission Date: 20210113
  Serious: Yes (Life-Threatening, Hospitalization, Other)
  Sender: FDA-Public Use
  Company Number: IT-HIKMA PHARMACEUTICALS USA INC.-IT-H14001-20-52146

PATIENT
  Age: 54 Year
  Sex: Male

DRUGS (5)
  1. BISOPROLOL [Suspect]
     Active Substance: BISOPROLOL
     Indication: CARDIAC FAILURE
     Route: 065
  2. APIXABAN [Concomitant]
     Active Substance: APIXABAN
     Indication: PRODUCT USED FOR UNKNOWN INDICATION
     Route: 065
  3. AMIODARONE [Suspect]
     Active Substance: AMIODARONE
     Indication: ATRIAL FIBRILLATION
     Route: 048
  4. RAMIPRIL. [Concomitant]
     Active Substance: RAMIPRIL
     Indication: CARDIAC FAILURE
     Route: 065
  5. CANRENONE [Concomitant]
     Active Substance: CANRENONE
     Indication: CARDIAC FAILURE
     Route: 065

REACTIONS (3)
  - Bradycardia [Recovering/Resolving]
  - Drug ineffective [Recovering/Resolving]
  - Corneal disorder [Recovering/Resolving]
